FAERS Safety Report 11690559 (Version 4)
Quarter: 2016Q1

REPORT INFORMATION
  Report Type: Spontaneous
  Country: US (occurrence: US)
  Receive Date: 20151102
  Receipt Date: 20160225
  Transmission Date: 20160525
  Serious: No
  Sender: FDA-Public Use
  Company Number: US-PFIZER INC-2015368272

PATIENT
  Age: 59 Year
  Sex: Female
  Weight: 64 kg

DRUGS (2)
  1. ESTRING [Suspect]
     Active Substance: ESTRADIOL
     Dosage: 2 MG, UNK
     Dates: start: 20150812, end: 20151101
  2. ESTRING [Suspect]
     Active Substance: ESTRADIOL
     Indication: VULVOVAGINAL DRYNESS
     Dosage: UNK, EVERY 3 MONTHS
     Route: 067
     Dates: start: 201502

REACTIONS (2)
  - Vulvovaginal discomfort [Unknown]
  - Product quality issue [Unknown]
